FAERS Safety Report 19208628 (Version 1)
Quarter: 2021Q2

REPORT INFORMATION
  Report Type: Spontaneous
  Country: DE (occurrence: DE)
  Receive Date: 20210503
  Receipt Date: 20210503
  Transmission Date: 20210717
  Serious: Yes (Other)
  Sender: FDA-Public Use
  Company Number: DE-JNJFOC-20210427375

PATIENT
  Age: 77 Year
  Sex: Female

DRUGS (7)
  1. SPRAVATO [Suspect]
     Active Substance: ESKETAMINE
     Indication: MAJOR DEPRESSION
     Route: 045
     Dates: start: 20210329
  2. LORAZEPAM. [Concomitant]
     Active Substance: LORAZEPAM
     Indication: SUICIDAL IDEATION
  3. AMLODIPINE [Concomitant]
     Active Substance: AMLODIPINE BESYLATE
     Indication: HYPERTENSION
  4. LORAZEPAM. [Concomitant]
     Active Substance: LORAZEPAM
  5. CANDESARTAN. [Concomitant]
     Active Substance: CANDESARTAN
     Indication: HYPERTENSION
  6. SPRAVATO [Suspect]
     Active Substance: ESKETAMINE
     Indication: SUICIDAL IDEATION
  7. ZOPICLON [Concomitant]
     Active Substance: ZOPICLONE
     Indication: SLEEP DISORDER

REACTIONS (3)
  - Wrong technique in product usage process [Unknown]
  - Fear [Unknown]
  - Dissociation [Unknown]

NARRATIVE: CASE EVENT DATE: 20210329
